FAERS Safety Report 7379238-X (Version None)
Quarter: 2011Q1

REPORT INFORMATION
  Report Type: 
  Country: None (occurrence: None)
  Receive Date: 20110328
  Receipt Date: 20110314
  Transmission Date: 20110831
  Serious: Yes (Hospitalization)
  Sender: FDA-Public Use
  Company Number: JP-GENENTECH-315608

PATIENT
  Age: 49 Year
  Sex: Male

DRUGS (5)
  1. RITUXIMAB [Suspect]
     Indication: B-CELL LYMPHOMA
     Dosage: UNK
     Route: 065
  2. VINCRISTINE [Concomitant]
     Indication: B-CELL LYMPHOMA
     Dosage: UNK
  3. PREDNISOLONE [Concomitant]
     Indication: B-CELL LYMPHOMA
     Dosage: UNK
  4. CYCLOPHOSPHAMIDE [Concomitant]
     Indication: B-CELL LYMPHOMA
     Dosage: UNK
  5. DOXORUBICIN [Concomitant]
     Indication: B-CELL LYMPHOMA
     Dosage: UNK

REACTIONS (1)
  - PNEUMOCYSTIS JIROVECI PNEUMONIA [None]
